FAERS Safety Report 18397924 (Version 2)
Quarter: 2020Q4

REPORT INFORMATION
  Report Type: Spontaneous
  Country: DE (occurrence: DE)
  Receive Date: 20201019
  Receipt Date: 20201023
  Transmission Date: 20210114
  Serious: Yes (Hospitalization, Other)
  Sender: FDA-Public Use
  Company Number: DE-STRIDES ARCOLAB LIMITED-2020SP012232

PATIENT
  Age: 5 Decade
  Sex: Male

DRUGS (4)
  1. TACROLIMUS. [Suspect]
     Active Substance: TACROLIMUS
     Indication: LIVER TRANSPLANT
     Dosage: UNK
     Route: 065
  2. LAMIVUDINE. [Suspect]
     Active Substance: LAMIVUDINE
     Indication: ANTIVIRAL PROPHYLAXIS
     Dosage: 100 MILLIGRAM PER DAY
     Route: 065
     Dates: start: 200601
  3. MYCOPHENOLATE MOFETIL. [Suspect]
     Active Substance: MYCOPHENOLATE MOFETIL
     Indication: LIVER TRANSPLANT
     Dosage: UNK
     Route: 065
  4. ADEFOVIR DIPIVOXIL. [Suspect]
     Active Substance: ADEFOVIR DIPIVOXIL
     Indication: ANTIVIRAL PROPHYLAXIS
     Dosage: 10 MILLIGRAM PER DAY
     Route: 065
     Dates: start: 200601

REACTIONS (11)
  - Portal hypertension [Unknown]
  - Varices oesophageal [Unknown]
  - Ascites [Unknown]
  - Hepatic cirrhosis [Recovered/Resolved]
  - Hepatitis D [Unknown]
  - Cytomegalovirus infection [Recovered/Resolved]
  - Leukopenia [Unknown]
  - Off label use [Unknown]
  - Hepatitis B DNA assay positive [Unknown]
  - Chronic hepatitis [Recovered/Resolved]
  - Encephalopathy [Unknown]
